FAERS Safety Report 15002749 (Version 2)
Quarter: 2018Q3

REPORT INFORMATION
  Report Type: Spontaneous
  Country: US (occurrence: US)
  Receive Date: 20180612
  Receipt Date: 20180731
  Transmission Date: 20181010
  Serious: No
  Sender: FDA-Public Use
  Company Number: US-009507513-1806USA003201

PATIENT
  Age: 61 Year
  Sex: Female

DRUGS (1)
  1. ASMANEX [Suspect]
     Active Substance: MOMETASONE FUROATE
     Indication: RESPIRATION ABNORMAL
     Dosage: 1 PUFF ORALLY EVERY MORNING
     Route: 055

REACTIONS (4)
  - Drug dose omission [Unknown]
  - Product quality issue [Recovered/Resolved]
  - Adverse event [Recovered/Resolved]
  - Inappropriate schedule of drug administration [Unknown]

NARRATIVE: CASE EVENT DATE: 20180603
